FAERS Safety Report 4295951-5 (Version None)
Quarter: 2004Q1

REPORT INFORMATION
  Report Type: 
  Country: None (occurrence: None)
  Receive Date: 20040212
  Receipt Date: 20040202
  Transmission Date: 20041129
  Serious: Yes (Life-Threatening)
  Sender: FDA-Public Use
  Company Number: 2004AP00531

PATIENT
  Age: 55 Year
  Sex: Female

DRUGS (1)
  1. DIPRIVAN [Suspect]
     Dosage: 100 MG DAILY IV
     Route: 042
     Dates: start: 20040130, end: 20040130

REACTIONS (1)
  - ASTHMA [None]
